FAERS Safety Report 9130679 (Version 2)
Quarter: 2013Q2

REPORT INFORMATION
  Report Type: Spontaneous
  Country: US (occurrence: US)
  Receive Date: 20130301
  Receipt Date: 20130405
  Transmission Date: 20140414
  Serious: No
  Sender: FDA-Public Use
  Company Number: US-BIOGENIDEC-2013BI017205

PATIENT
  Age: 40 Year
  Sex: Female

DRUGS (2)
  1. AVONEX [Suspect]
     Indication: MULTIPLE SCLEROSIS
     Route: 030
     Dates: start: 20120615
  2. AVONEX [Suspect]
     Indication: MULTIPLE SCLEROSIS
     Route: 030
     Dates: start: 20121206

REACTIONS (10)
  - Urine output decreased [Not Recovered/Not Resolved]
  - Chromaturia [Not Recovered/Not Resolved]
  - Cystitis [Unknown]
  - Sensation of heaviness [Not Recovered/Not Resolved]
  - Influenza like illness [Recovered/Resolved]
  - Muscle spasms [Recovered/Resolved]
  - Fatigue [Not Recovered/Not Resolved]
  - Emotional disorder [Not Recovered/Not Resolved]
  - Multiple sclerosis relapse [Not Recovered/Not Resolved]
  - Arthralgia [Not Recovered/Not Resolved]
